FAERS Safety Report 4556026-0 (Version None)
Quarter: 2005Q1

REPORT INFORMATION
  Report Type: 
  Country: None (occurrence: None)
  Receive Date: 20050119
  Receipt Date: 20041102
  Transmission Date: 20050727
  Serious: Yes (Other)
  Sender: FDA-Public Use
  Company Number: US-GLAXOSMITHKLINE-A0532249A

PATIENT
  Age: 9 Year
  Sex: Male
  Weight: 33.5 kg

DRUGS (12)
  1. FLOVENT [Suspect]
     Indication: ASTHMA
     Dosage: 50MCG UNKNOWN
     Route: 055
     Dates: start: 19980101
  2. ADVAIR DISKUS 100/50 [Suspect]
     Indication: ASTHMA
  3. FLOVENT [Suspect]
     Route: 055
  4. PREDNISONE [Concomitant]
     Indication: ASTHMA
  5. SUDAFED 12 HOUR [Concomitant]
     Dosage: 30MG TWICE PER DAY
     Route: 048
  6. ALLEGRA [Concomitant]
     Dosage: 60MG TWICE PER DAY
     Route: 048
  7. ATROVENT [Concomitant]
     Route: 065
  8. OCEAN SPRAY [Concomitant]
     Route: 048
  9. SINGULAIR [Concomitant]
     Dosage: 5MG PER DAY
     Route: 065
  10. ALBUTEROL [Concomitant]
     Route: 055
  11. ALBUTEROL [Concomitant]
     Route: 055
  12. IPRATROPIUM BR [Concomitant]

REACTIONS (10)
  - ABDOMINAL PAIN UPPER [None]
  - ASTHMA [None]
  - CHEST PAIN [None]
  - DRUG INEFFECTIVE [None]
  - DYSPNOEA [None]
  - HEADACHE [None]
  - OROPHARYNGEAL SWELLING [None]
  - PHARYNGOLARYNGEAL PAIN [None]
  - STOMACH DISCOMFORT [None]
  - VOMITING [None]
